FAERS Safety Report 18973214 (Version 1)
Quarter: 2021Q1

REPORT INFORMATION
  Report Type: Report from Study
  Country: AR (occurrence: AR)
  Receive Date: 20210305
  Receipt Date: 20210305
  Transmission Date: 20210420
  Serious: Yes (Other)
  Sender: FDA-Public Use
  Company Number: AR-BRISTOL-MYERS SQUIBB COMPANY-BMS-2021-020887

PATIENT
  Age: 64 Year
  Sex: Male

DRUGS (2)
  1. APIXABAN [Suspect]
     Active Substance: APIXABAN
     Dosage: 5 UNK
     Route: 065
     Dates: start: 20210124
  2. APIXABAN [Suspect]
     Active Substance: APIXABAN
     Indication: PRODUCT USED FOR UNKNOWN INDICATION
     Dosage: 5 MILLIGRAM
     Route: 065
     Dates: start: 2017, end: 202012

REACTIONS (9)
  - Clumsiness [Unknown]
  - Eye disorder [Unknown]
  - Drug ineffective [Not Recovered/Not Resolved]
  - Contusion [Unknown]
  - Blindness [Unknown]
  - Fall [Unknown]
  - Joint injury [Unknown]
  - Nasal injury [Unknown]
  - Wound haemorrhage [Unknown]

NARRATIVE: CASE EVENT DATE: 20210110
